FAERS Safety Report 9967339 (Version 2)
Quarter: 2014Q1

REPORT INFORMATION
  Report Type: Report from Study
  Country: US (occurrence: US)
  Receive Date: 20140305
  Receipt Date: 20140305
  Transmission Date: 20141002
  Serious: Yes (Other)
  Sender: FDA-Public Use
  Company Number: US-ABBVIE-13P-163-1126299-00

PATIENT
  Age: 55 Year
  Sex: Female
  Weight: 84.44 kg

DRUGS (13)
  1. HUMIRA [Suspect]
     Indication: CROHN^S DISEASE
     Dates: start: 200806
  2. XALATAN [Concomitant]
     Indication: PRODUCT USED FOR UNKNOWN INDICATION
     Dosage: 1 GTTS EACH EYE ONCE A DAY
     Route: 047
  3. LIPITOR [Concomitant]
     Indication: PRODUCT USED FOR UNKNOWN INDICATION
  4. CALCIUM + VITAMIN D3 [Concomitant]
     Indication: PRODUCT USED FOR UNKNOWN INDICATION
  5. BABY ASPIRIN [Concomitant]
     Indication: PRODUCT USED FOR UNKNOWN INDICATION
  6. MULTIVITAMIN [Concomitant]
     Indication: PRODUCT USED FOR UNKNOWN INDICATION
  7. IRON [Concomitant]
     Indication: PRODUCT USED FOR UNKNOWN INDICATION
  8. OTHER DIABETES MEDICATIONS [Concomitant]
     Indication: DIABETES MELLITUS
  9. METFORMIN [Concomitant]
     Indication: DIABETES MELLITUS
  10. LEVEMIR [Concomitant]
     Indication: DIABETES MELLITUS
     Dosage: AT BEDTIME
  11. LEVOTHYROXINE [Concomitant]
     Indication: THYROIDECTOMY
  12. BUSPIRONE [Concomitant]
     Indication: PRODUCT USED FOR UNKNOWN INDICATION
  13. ACTOS [Concomitant]
     Indication: DIABETES MELLITUS
     Dates: start: 2012, end: 2013

REACTIONS (7)
  - Osteoarthritis [Unknown]
  - Arthralgia [Unknown]
  - Skin cancer [Unknown]
  - Eczema [Not Recovered/Not Resolved]
  - Psoriasis [Not Recovered/Not Resolved]
  - Goitre [Not Recovered/Not Resolved]
  - Papillary thyroid cancer [Unknown]
